FAERS Safety Report 8826331 (Version 11)
Quarter: 2016Q3

REPORT INFORMATION
  Report Type: Report from Study
  Country: JP (occurrence: JP)
  Receive Date: 20121008
  Receipt Date: 20160707
  Transmission Date: 20161109
  Serious: Yes (Death, Life-Threatening, Other)
  Sender: FDA-Public Use
  Company Number: PHHY2012JP085203

PATIENT
  Age: 55 Year
  Sex: Male
  Weight: 57.9 kg

DRUGS (12)
  1. GILENYA [Suspect]
     Active Substance: FINGOLIMOD HYDROCHLORIDE
     Indication: SECONDARY PROGRESSIVE MULTIPLE SCLEROSIS
     Dosage: 0.5 MG, QD
     Route: 048
     Dates: start: 20111215, end: 20120919
  2. GILENYA [Suspect]
     Active Substance: FINGOLIMOD HYDROCHLORIDE
     Indication: MULTIPLE SCLEROSIS
  3. NORVASC [Concomitant]
     Active Substance: AMLODIPINE BESYLATE
     Indication: PRODUCT USED FOR UNKNOWN INDICATION
     Route: 048
  4. MAGMITT KENEI [Concomitant]
     Indication: PRODUCT USED FOR UNKNOWN INDICATION
     Route: 048
  5. SOLU-MEDROL [Suspect]
     Active Substance: METHYLPREDNISOLONE SODIUM SUCCINATE
     Dosage: 1000 MG, QD
     Route: 042
     Dates: start: 20120922, end: 20120924
  6. SENNOSIDE [Concomitant]
     Active Substance: SENNOSIDES
     Indication: PRODUCT USED FOR UNKNOWN INDICATION
     Route: 048
  7. KETOPROFEN. [Concomitant]
     Active Substance: KETOPROFEN
     Indication: BACK PAIN
     Dosage: 20 MG, UNK
     Route: 048
  8. ETOPOSIDE. [Concomitant]
     Active Substance: ETOPOSIDE
     Indication: PRODUCT USED FOR UNKNOWN INDICATION
     Dosage: 240 MG, UNK
     Route: 065
     Dates: start: 20120926, end: 20120926
  9. MEROPENEM. [Concomitant]
     Active Substance: MEROPENEM
     Indication: PRODUCT USED FOR UNKNOWN INDICATION
     Dosage: 0.5 MG, TID
     Route: 065
     Dates: start: 20120927
  10. SOLU-MEDROL [Suspect]
     Active Substance: METHYLPREDNISOLONE SODIUM SUCCINATE
     Indication: PRODUCT USED FOR UNKNOWN INDICATION
     Dosage: 1000 MG, QD
     Route: 042
     Dates: end: 20120916
  11. LENDORMIN [Concomitant]
     Active Substance: BROTIZOLAM
     Indication: INSOMNIA
     Dosage: 0.25 MG, UNK
     Route: 048
  12. AMLODIN [Concomitant]
     Active Substance: AMLODIPINE BESYLATE
     Indication: PRODUCT USED FOR UNKNOWN INDICATION
     Route: 048

REACTIONS (94)
  - Ocular icterus [Fatal]
  - Alanine aminotransferase increased [Fatal]
  - Herpes simplex [Fatal]
  - Haematemesis [Unknown]
  - Central nervous system lesion [Unknown]
  - Abdominal distension [Unknown]
  - Chills [Unknown]
  - Nystagmus [Unknown]
  - Malaise [Unknown]
  - Urinary incontinence [Unknown]
  - Neutrophil count increased [Unknown]
  - Gallbladder disorder [Unknown]
  - Pyrexia [Fatal]
  - Sepsis [Fatal]
  - Lymphohistiocytosis [Fatal]
  - Acquired diaphragmatic eventration [Unknown]
  - Oxygen saturation decreased [Unknown]
  - Tonsillitis [Unknown]
  - Enterocolitis [Unknown]
  - Blood phosphorus decreased [Unknown]
  - Urinary retention [Unknown]
  - Blood pressure abnormal [Unknown]
  - Subcutaneous emphysema [Unknown]
  - Aspartate aminotransferase increased [Fatal]
  - Serum ferritin increased [Fatal]
  - Lymphocyte count decreased [Fatal]
  - Bone marrow myelogram abnormal [Fatal]
  - Anuria [Fatal]
  - Blood lactate dehydrogenase increased [Fatal]
  - Antithrombin III decreased [Unknown]
  - Depressed level of consciousness [Unknown]
  - Haemophilus test positive [Unknown]
  - Viraemia [Unknown]
  - Gait disturbance [Unknown]
  - Pain [Unknown]
  - Heart rate increased [Unknown]
  - White blood cell count decreased [Unknown]
  - Bilirubin conjugated increased [Fatal]
  - Megakaryocytes decreased [Fatal]
  - Coagulation factor decreased [Unknown]
  - C-reactive protein increased [Unknown]
  - Melaena [Unknown]
  - Pharyngeal oedema [Unknown]
  - Respiratory rate increased [Unknown]
  - Oropharyngeal pain [Unknown]
  - Tonsillar hypertrophy [Unknown]
  - Muscle rigidity [Unknown]
  - Hyperthermia [Unknown]
  - Acute hepatic failure [Fatal]
  - Platelet count decreased [Fatal]
  - Blood potassium increased [Fatal]
  - Fibrin degradation products increased [Unknown]
  - Activated partial thromboplastin time prolonged [Unknown]
  - Gastrointestinal haemorrhage [Unknown]
  - Cytomegalovirus test positive [Unknown]
  - Respiratory fatigue [Unknown]
  - Pleural effusion [Unknown]
  - Pharyngitis [Unknown]
  - Constipation [Unknown]
  - Ascites [Unknown]
  - Hepatic cyst [Unknown]
  - Interleukin-2 receptor increased [Unknown]
  - Blood culture positive [Unknown]
  - Escherichia test positive [Unknown]
  - Blood alkaline phosphatase increased [Fatal]
  - Blood albumin decreased [Fatal]
  - Protein total decreased [Fatal]
  - Hepatomegaly [Fatal]
  - Splenomegaly [Fatal]
  - Erythropoiesis abnormal [Fatal]
  - Blood urea increased [Fatal]
  - Disseminated intravascular coagulation [Unknown]
  - Prothrombin time prolonged [Unknown]
  - Gastrointestinal oedema [Unknown]
  - Hypoaesthesia [Unknown]
  - Blood creatine phosphokinase increased [Unknown]
  - Atelectasis [Unknown]
  - Histiocytosis haematophagic [Fatal]
  - Blood bilirubin increased [Fatal]
  - Dyspnoea [Not Recovered/Not Resolved]
  - Muscular weakness [Unknown]
  - Insomnia [Unknown]
  - Renal cyst [Unknown]
  - Gamma-glutamyltransferase increased [Fatal]
  - Acute kidney injury [Fatal]
  - Blood chloride increased [Fatal]
  - Blood bicarbonate decreased [Fatal]
  - Hyperlactacidaemia [Fatal]
  - Blood fibrinogen decreased [Unknown]
  - Atrophy [Unknown]
  - Respiratory disorder [Unknown]
  - Enterobacter test positive [Unknown]
  - Epstein-Barr virus test positive [Unknown]
  - Movement disorder [Unknown]

NARRATIVE: CASE EVENT DATE: 201204
